FAERS Safety Report 4596486-2 (Version None)
Quarter: 2005Q1

REPORT INFORMATION
  Report Type: 
  Country: None (occurrence: None)
  Receive Date: 20050228
  Receipt Date: 20050214
  Transmission Date: 20050727
  Serious: Yes (Hospitalization, Other)
  Sender: FDA-Public Use
  Company Number: 2005031434

PATIENT
  Age: 77 Year
  Sex: Male
  Weight: 75 kg

DRUGS (10)
  1. TIKOSYN [Suspect]
     Indication: ILL-DEFINED DISORDER
     Dosage: 1000 MCG (500 MCG, 2 IN 1D) ORAL
     Route: 048
  2. ASPIRIN [Concomitant]
  3. CARVEDILOL [Concomitant]
  4. TORSEMIDE [Concomitant]
  5. FOLIC ACID [Concomitant]
  6. BENAZEPRIL HCL [Concomitant]
  7. GABAPENTIN [Concomitant]
  8. POTASSIUM ACETATE [Concomitant]
  9. LANSOPRAZOLE [Concomitant]
  10. CHOLESTYRAMINE [Concomitant]

REACTIONS (5)
  - ARRHYTHMIA [None]
  - ASTHENIA [None]
  - BLOOD CREATININE INCREASED [None]
  - CARDIAC FAILURE CONGESTIVE [None]
  - PNEUMONIA [None]
